FAERS Safety Report 5639457-7 (Version None)
Quarter: 2008Q1

REPORT INFORMATION
  Report Type: 
  Country: None (occurrence: None)
  Receive Date: 20080226
  Receipt Date: 20080219
  Transmission Date: 20080703
  Serious: Yes (Hospitalization, Other)
  Sender: FDA-Public Use
  Company Number: US-PFIZER INC-2008015261

PATIENT
  Sex: Female
  Weight: 92.1 kg

DRUGS (1)
  1. BEXTRA [Suspect]
     Indication: ARTHRALGIA
     Dosage: TEXT:10MG AND 20MG-FREQ:1-2 TIMES PER DAY

REACTIONS (3)
  - ANXIETY [None]
  - DEPRESSION [None]
  - HAEMORRHAGIC STROKE [None]
